FAERS Safety Report 6456366-4 (Version None)
Quarter: 2009Q4

REPORT INFORMATION
  Report Type: 
  Country: None (occurrence: None)
  Receive Date: 20091124
  Receipt Date: 20091124
  Transmission Date: 20100525
  Serious: Yes (Hospitalization)
  Sender: FDA-Public Use
  Company Number: None

PATIENT
  Sex: Female

DRUGS (1)
  1. AMPHETAMINE 30MG BARR [Suspect]
     Dosage: 1/2 TABLET TWICE DAILY PO
     Route: 048
     Dates: start: 20091112, end: 20091122

REACTIONS (4)
  - BLOOD PRESSURE INCREASED [None]
  - CHEST PAIN [None]
  - HYPOAESTHESIA [None]
  - PAIN [None]
